FAERS Safety Report 9424584 (Version 1)
Quarter: 2013Q3

REPORT INFORMATION
  Report Type: Spontaneous
  Country: US (occurrence: None)
  Receive Date: 20130726
  Receipt Date: 20130726
  Transmission Date: 20140515
  Serious: No
  Sender: FDA-Public Use
  Company Number: None

PATIENT
  Sex: Male
  Weight: 2.04 kg

DRUGS (1)
  1. INFASURF [Suspect]
     Indication: NEONATAL RESPIRATORY DISTRESS SYNDROME
     Dosage: 6 ML ONCE CTT
     Dates: start: 20130713

REACTIONS (1)
  - PCO2 increased [None]
